FAERS Safety Report 7123749-9 (Version None)
Quarter: 2010Q4

REPORT INFORMATION
  Report Type: 
  Country: None (occurrence: None)
  Receive Date: 20101125
  Receipt Date: 20101112
  Transmission Date: 20110411
  Serious: Yes (Other)
  Sender: FDA-Public Use
  Company Number: PHHY2010JP64476

PATIENT
  Sex: Female
  Weight: 49 kg

DRUGS (6)
  1. GLEEVEC [Suspect]
     Indication: ACUTE LYMPHOCYTIC LEUKAEMIA
     Dosage: 600 MG, QD
     Route: 048
     Dates: start: 20090611, end: 20090615
  2. GABEXATE MESILATE [Concomitant]
     Dosage: 2000 MG, QD
     Route: 041
     Dates: start: 20090605, end: 20090614
  3. DAUNOMYCIN [Concomitant]
     Indication: ACUTE LYMPHOCYTIC LEUKAEMIA
     Dosage: 70 MG, QD
     Route: 041
     Dates: start: 20090605, end: 20090609
  4. CYLOCIDE [Concomitant]
     Indication: ACUTE LYMPHOCYTIC LEUKAEMIA
     Dosage: 140 MG, QD
     Route: 041
     Dates: start: 20090605, end: 20090611
  5. PREDNISOLONE [Concomitant]
     Indication: ACUTE LYMPHOCYTIC LEUKAEMIA
     Dosage: 50 MG, QD
     Route: 041
     Dates: start: 20090605, end: 20090611
  6. ONCOVIN [Concomitant]
     Indication: ACUTE LYMPHOCYTIC LEUKAEMIA
     Dosage: 1.9 MG, QD
     Route: 041
     Dates: start: 20090612, end: 20090612

REACTIONS (9)
  - ALANINE AMINOTRANSFERASE INCREASED [None]
  - ALTERED STATE OF CONSCIOUSNESS [None]
  - BLOOD BILIRUBIN INCREASED [None]
  - GAMMA-GLUTAMYLTRANSFERASE INCREASED [None]
  - MALAISE [None]
  - NAUSEA [None]
  - NEUROLOGICAL SYMPTOM [None]
  - PLATELET COUNT DECREASED [None]
  - WHITE BLOOD CELL COUNT DECREASED [None]
